FAERS Safety Report 9340938 (Version 1)
Quarter: 2013Q2

REPORT INFORMATION
  Report Type: Other
  Country: ES (occurrence: ES)
  Receive Date: 20130610
  Receipt Date: 20130610
  Transmission Date: 20140414
  Serious: Yes (Death)
  Sender: FDA-Public Use
  Company Number: ES-ACTELION-A-CH2013-83910

PATIENT
  Age: 38 Day
  Sex: Female

DRUGS (7)
  1. TRACLEER [Suspect]
     Indication: PERSISTENT FOETAL CIRCULATION
     Route: 048
  2. HYDROXYCHLOROQUINE [Concomitant]
  3. NITRIC OXIDE [Concomitant]
  4. HYDROCORTISONE [Concomitant]
  5. SILDENAFIL [Concomitant]
  6. PROSTACYCLIN [Concomitant]
  7. CLARITHROMYCIN [Concomitant]

REACTIONS (1)
  - Pulmonary hypertensive crisis [Fatal]
